FAERS Safety Report 5026350-6 (Version None)
Quarter: 2006Q2

REPORT INFORMATION
  Report Type: 
  Country: None (occurrence: None)
  Receive Date: 20060615
  Receipt Date: 20060503
  Transmission Date: 20061013
  Serious: Yes (Other)
  Sender: FDA-Public Use
  Company Number: US-BRISTOL-MYERS SQUIBB COMPANY-13367289

PATIENT
  Sex: Male

DRUGS (1)
  1. TAXOL [Suspect]
     Route: 042

REACTIONS (4)
  - EXTRAVASATION [None]
  - NERVE INJURY [None]
  - PAIN [None]
  - SENSORY LOSS [None]
